FAERS Safety Report 5415395-X (Version None)
Quarter: 2007Q3

REPORT INFORMATION
  Report Type: 
  Country: None (occurrence: None)
  Receive Date: 20070813
  Receipt Date: 20070727
  Transmission Date: 20080115
  Serious: No
  Sender: FDA-Public Use
  Company Number: DSA_30327_2007

PATIENT
  Age: 63 Year
  Sex: Male

DRUGS (9)
  1. ENALAPRIL MALEATE [Suspect]
     Indication: HYPERTENSION
     Dosage: 20 MG QD ORAL
     Route: 048
     Dates: end: 20070622
  2. SULFAMETHOXAZOLE W/TRIMETHOPRIM (SULFAMETHOXAZOLE /TRIMETHOPRIM [Suspect]
     Indication: URINARY TRACT INFECTION
     Dosage: 1 DF BID ORAL
     Route: 048
     Dates: start: 20070529, end: 20070621
  3. OFLOXACIN [Suspect]
     Indication: URINARY TRACT INFECTION
     Dosage: 200 MG BID ORAL
     Route: 048
     Dates: start: 20070529, end: 20070621
  4. GLIMEPIRIDE (GLIMEPIRIDE) 5 MG [Suspect]
     Indication: DIABETES MELLITUS
     Dosage: 5 MG QD ORAL
     Route: 048
     Dates: end: 20070621
  5. ALLOPURINOL [Suspect]
     Indication: HYPERURICAEMIA
     Dosage: 300 MG QD ORAL
     Route: 048
     Dates: end: 20070621
  6. PRAVASTATIN [Suspect]
     Indication: HYPERCHOLESTEROLAEMIA
     Dosage: 40 MG QD ORAL
     Route: 048
     Dates: end: 20060622
  7. ATENOLOL (+) NIFEDIPINE [Concomitant]
  8. BUMETANIDE [Concomitant]
  9. POTASSIUM CHLORIDE [Concomitant]

REACTIONS (4)
  - GINGIVAL BLEEDING [None]
  - HAEMATURIA [None]
  - PETECHIAE [None]
  - THROMBOCYTOPENIA [None]
